FAERS Safety Report 7812615 (Version 3)
Quarter: 2012Q4

REPORT INFORMATION
  Report Type: 
  Country: JP (occurrence: JP)
  Receive Date: 20110215
  Receipt Date: 20120910
  Transmission Date: 20130627
  Serious: Yes (Hospitalization)
  Sender: FDA-Public Use
  Company Number: PHHY2011JP08615

PATIENT
  Age: 48 Year
  Sex: Female

DRUGS (3)
  1. DIOVAN [Suspect]
     Route: 048
  2. PHENOBARBITAL [Suspect]
     Route: 048
  3. AMLODIPINE [Concomitant]
     Route: 048

REACTIONS (6)
  - Renal impairment [Unknown]
  - Drug reaction with eosinophilia and systemic symptoms [Recovering/Resolving]
  - C-reactive protein increased [Unknown]
  - White blood cell count increased [Unknown]
  - Blood pressure systolic decreased [Unknown]
  - Hepatic enzyme increased [Unknown]
